FAERS Safety Report 4856698-7 (Version None)
Quarter: 2005Q4

REPORT INFORMATION
  Report Type: 
  Country: None (occurrence: None)
  Receive Date: 20051215
  Receipt Date: 20051215
  Transmission Date: 20060501
  Serious: Yes (Life-Threatening, Hospitalization)
  Sender: FDA-Public Use
  Company Number: None

PATIENT
  Sex: Male
  Weight: 86.1834 kg

DRUGS (8)
  1. DIVALPROEX SODIUM [Suspect]
     Indication: SCHIZOPHRENIA
     Dosage: 250 MG PO BID
     Route: 048
     Dates: start: 20030813, end: 20050825
  2. BENZTROPINE MESYLATE [Concomitant]
  3. HALOPERIDOL DECANOATE [Concomitant]
  4. HALOPERIDOL [Concomitant]
  5. OMEPRAZOLE [Concomitant]
  6. TRAZODONE [Concomitant]
  7. DOCUSATE [Concomitant]
  8. IBUPROFEN [Concomitant]

REACTIONS (4)
  - AMMONIA INCREASED [None]
  - COORDINATION ABNORMAL [None]
  - DYSARTHRIA [None]
  - HEPATIC ENCEPHALOPATHY [None]
